FAERS Safety Report 12499704 (Version 1)
Quarter: 2016Q2

REPORT INFORMATION
  Report Type: Report from Study
  Country: JP (occurrence: JP)
  Receive Date: 20160627
  Receipt Date: 20160627
  Transmission Date: 20160815
  Serious: Yes (Hospitalization)
  Sender: FDA-Public Use
  Company Number: JP-SA-2016SA115990

PATIENT
  Age: 70 Year
  Sex: Female

DRUGS (10)
  1. NESP [Suspect]
     Active Substance: DARBEPOETIN ALFA
     Route: 048
     Dates: start: 20150626, end: 20150710
  2. NESP [Suspect]
     Active Substance: DARBEPOETIN ALFA
     Route: 048
     Dates: start: 20151118, end: 20151209
  3. NESP [Suspect]
     Active Substance: DARBEPOETIN ALFA
     Route: 048
     Dates: start: 20150710, end: 20151007
  4. NESP [Suspect]
     Active Substance: DARBEPOETIN ALFA
     Route: 048
     Dates: start: 20151007, end: 20151118
  5. NESP [Suspect]
     Active Substance: DARBEPOETIN ALFA
     Route: 048
     Dates: start: 20160120, end: 20160127
  6. ROCALTROL [Suspect]
     Active Substance: CALCITRIOL
     Route: 065
     Dates: start: 20141208
  7. PHOSBLOCK [Suspect]
     Active Substance: FERRIC HYDROXIDE
     Route: 048
     Dates: start: 20140428
  8. NESP [Suspect]
     Active Substance: DARBEPOETIN ALFA
     Route: 048
     Dates: start: 20150612, end: 20150626
  9. NESP [Suspect]
     Active Substance: DARBEPOETIN ALFA
     Route: 048
     Dates: start: 20151209, end: 20160120
  10. REGPARA [Suspect]
     Active Substance: CINACALCET HYDROCHLORIDE
     Route: 065
     Dates: start: 20150312

REACTIONS (3)
  - Hospitalisation [Recovering/Resolving]
  - Arteriovenous fistula site haemorrhage [Recovering/Resolving]
  - Arteriovenous fistula site complication [Recovering/Resolving]

NARRATIVE: CASE EVENT DATE: 20150622
